FAERS Safety Report 21786618 (Version 3)
Quarter: 2024Q4

REPORT INFORMATION
  Report Type: Spontaneous
  Country: BR (occurrence: BR)
  Receive Date: 20221228
  Receipt Date: 20241226
  Transmission Date: 20250114
  Serious: Yes (Other)
  Sender: CELLTRION
  Company Number: BR-CELLTRION INC.-2022BR021652

PATIENT

DRUGS (2)
  1. INFLIXIMAB [Suspect]
     Active Substance: INFLIXIMAB
     Indication: Colitis ulcerative
     Dosage: UNK
     Route: 042
     Dates: start: 202207
  2. INFLIXIMAB [Suspect]
     Active Substance: INFLIXIMAB
     Indication: Colitis
     Dosage: 4 AMPOULES EVERY 2 MONTHS
     Route: 042
     Dates: start: 20230614

REACTIONS (4)
  - Haematochezia [Recovered/Resolved]
  - Arthropod bite [Recovering/Resolving]
  - Rash [Unknown]
  - Abdominal pain upper [Unknown]
